FAERS Safety Report 10463357 (Version 2)
Quarter: 2014Q4

REPORT INFORMATION
  Report Type: Spontaneous
  Country: US (occurrence: US)
  Receive Date: 20140919
  Receipt Date: 20141216
  Transmission Date: 20150528
  Serious: No
  Sender: FDA-Public Use
  Company Number: US-009507513-1409USA003664

PATIENT
  Age: 23 Year
  Sex: Female
  Weight: 80.17 kg

DRUGS (4)
  1. SYNTHROID [Concomitant]
     Active Substance: LEVOTHYROXINE SODIUM
     Dosage: 50 MCG, UNK
  2. NORCO [Concomitant]
     Active Substance: ACETAMINOPHEN\HYDROCODONE BITARTRATE
     Dosage: 5-325 MG TABLET
  3. NEXPLANON [Suspect]
     Active Substance: ETONOGESTREL
     Indication: CONTRACEPTION
     Dosage: 68 MG, LEFT ARM
     Route: 059
     Dates: start: 20140902
  4. AMOXIL [Concomitant]
     Active Substance: AMOXICILLIN
     Dosage: 500 MG, UNK

REACTIONS (2)
  - Medical device complication [Unknown]
  - No adverse event [Unknown]

NARRATIVE: CASE EVENT DATE: 20140902
